FAERS Safety Report 8473769-7 (Version None)
Quarter: 2012Q2

REPORT INFORMATION
  Report Type: 
  Country: None (occurrence: None)
  Receive Date: 20120628
  Receipt Date: 20111101
  Transmission Date: 20120825
  Serious: Yes (Death)
  Sender: FDA-Public Use
  Company Number: US-MYLANLABS-2011S1022662

PATIENT
  Age: 68 Year
  Sex: Female

DRUGS (11)
  1. NOVOLIN N [Concomitant]
     Dosage: NOVOLIN 70/30
  2. NEXIUM [Concomitant]
  3. GABAPENTIN [Concomitant]
  4. CYMBALTA [Concomitant]
  5. VICODIN [Concomitant]
  6. ATROVENT [Concomitant]
  7. CLOZAPINE [Suspect]
     Indication: SCHIZOPHRENIA
     Route: 048
     Dates: end: 20111030
  8. LORAZEPAM [Concomitant]
  9. ALBUTEROL [Concomitant]
  10. NOVOLIN R [Concomitant]
  11. LEVOTHYROXINE [Concomitant]

REACTIONS (1)
  - DEATH [None]
